FAERS Safety Report 10466422 (Version 8)
Quarter: 2015Q4

REPORT INFORMATION
  Report Type: Report from Study
  Country: ID (occurrence: ID)
  Receive Date: 20140922
  Receipt Date: 20151229
  Transmission Date: 20160304
  Serious: Yes (Other)
  Sender: FDA-Public Use
  Company Number: ID-ROCHE-1450951

PATIENT
  Age: 33 Year
  Sex: Female

DRUGS (3)
  1. PEGASYS [Suspect]
     Active Substance: PEGINTERFERON ALFA-2A
     Indication: CHRONIC HEPATITIS C
     Route: 065
     Dates: start: 20140326, end: 20150219
  2. COPEGUS [Suspect]
     Active Substance: RIBAVIRIN
     Indication: HEPATITIS C
     Dosage: 1 TABLET IN MORNING, 2 TABLETS IN AFTERNOON.
     Route: 048
  3. PEGASYS [Suspect]
     Active Substance: PEGINTERFERON ALFA-2A
     Dosage: AT 33 CYCLE, DOSE WAS REDUCED TO 90 MCG
     Route: 065

REACTIONS (15)
  - Rash [Unknown]
  - Asthenia [Unknown]
  - Dry skin [Unknown]
  - Decreased appetite [Unknown]
  - Nausea [Unknown]
  - Fatigue [Unknown]
  - Pain [Unknown]
  - Burning sensation [Unknown]
  - White blood cell count decreased [Unknown]
  - Dizziness [Unknown]
  - Leukopenia [Not Recovered/Not Resolved]
  - Peripheral swelling [Unknown]
  - Anaemia [Unknown]
  - Weight decreased [Unknown]
  - Pruritus [Unknown]
